FAERS Safety Report 18012879 (Version 1)
Quarter: 2020Q3

REPORT INFORMATION
  Report Type: Report from Study
  Country: CA (occurrence: CA)
  Receive Date: 20200713
  Receipt Date: 20200713
  Transmission Date: 20201103
  Serious: Yes (Other)
  Sender: FDA-Public Use
  Company Number: CA-ACCORD-190116

PATIENT
  Age: 53 Year
  Sex: Female

DRUGS (4)
  1. MYCOPHENOLATE MOFETIL/MYCOPHENOLATE SODIUM/MYCOPHENOLIC ACID [Suspect]
     Active Substance: MYCOPHENOLIC ACID
     Indication: PRODUCT USED FOR UNKNOWN INDICATION
     Route: 065
  2. PREDNISONE. [Suspect]
     Active Substance: PREDNISONE
     Indication: PRODUCT USED FOR UNKNOWN INDICATION
     Dosage: NOT SPECIFIED
     Route: 065
  3. SALBUTAMOL [Suspect]
     Active Substance: ALBUTEROL
     Indication: PRODUCT USED FOR UNKNOWN INDICATION
     Route: 065
  4. CICLOSPORIN [Suspect]
     Active Substance: CYCLOSPORINE
     Indication: PRODUCT USED FOR UNKNOWN INDICATION
     Dosage: NOT SPECIFIED
     Route: 042

REACTIONS (9)
  - Cough [Unknown]
  - Sinusitis [Unknown]
  - Chronic obstructive pulmonary disease [Unknown]
  - Eosinophilic myocarditis [Unknown]
  - Pulmonary mass [Unknown]
  - Asthma [Unknown]
  - Polyp [Unknown]
  - Therapeutic product effect incomplete [Unknown]
  - Eosinophilic granulomatosis with polyangiitis [Unknown]
